FAERS Safety Report 5211687-8 (Version None)
Quarter: 2007Q1

REPORT INFORMATION
  Report Type: 
  Country: None (occurrence: None)
  Receive Date: 20070118
  Receipt Date: 20070108
  Transmission Date: 20070707
  Serious: Yes (Death, Life-Threatening)
  Sender: FDA-Public Use
  Company Number: FR-BAYER-200710017BFR

PATIENT
  Age: 50 Year
  Sex: Male

DRUGS (18)
  1. MOXIFLOXACIN HYDROCHLORIDE [Suspect]
     Indication: MYCOBACTERIAL INFECTION
     Dosage: TOTAL DAILY DOSE: 400 MG  UNIT DOSE: 400 MG
     Route: 048
     Dates: start: 20061129, end: 20061211
  2. TRIFLUCAN [Suspect]
     Indication: UNEVALUABLE EVENT
     Dosage: UNIT DOSE: 50 MG
     Route: 048
     Dates: start: 20061201, end: 20061211
  3. NORVIR [Suspect]
     Indication: HIV INFECTION
     Route: 048
     Dates: start: 20061116, end: 20061128
  4. NORVIR [Suspect]
     Dates: start: 20061202, end: 20061211
  5. EPIVIR [Suspect]
     Indication: HIV INFECTION
     Dosage: UNIT DOSE: 300 MG
     Route: 048
     Dates: start: 20061116, end: 20061128
  6. EPIVIR [Suspect]
     Dates: start: 20061202, end: 20061215
  7. ZIAGEN [Suspect]
     Indication: HIV INFECTION
     Dosage: UNIT DOSE: 600 MG
     Route: 048
     Dates: start: 20061116, end: 20061128
  8. ZIAGEN [Suspect]
     Dates: start: 20061202, end: 20061211
  9. REYATAZ [Suspect]
     Indication: HIV INFECTION
     Route: 048
     Dates: start: 20061116, end: 20061128
  10. REYATAZ [Suspect]
     Dates: start: 20061202, end: 20061211
  11. BACTRIM [Concomitant]
     Indication: UNEVALUABLE EVENT
     Dates: end: 20061101
  12. BACTRIM [Concomitant]
     Dates: start: 20061201, end: 20061204
  13. CLARITHROMYCIN [Concomitant]
     Indication: MYCOBACTERIAL INFECTION
     Dates: start: 20061010
  14. ETHAMBUTOL HYDROCHLORIDE [Concomitant]
     Indication: MYCOBACTERIAL INFECTION
     Dates: start: 20061010
  15. CYMEVAN [Concomitant]
     Indication: CYTOMEGALOVIRUS INFECTION
     Dates: end: 20061128
  16. ROVALCYTE [Concomitant]
     Indication: CYTOMEGALOVIRUS INFECTION
     Dates: start: 20061128, end: 20061204
  17. PRAZEPAM [Concomitant]
     Indication: DEPRESSION
     Dates: start: 20061129, end: 20061204
  18. EFFEXOR [Concomitant]
     Indication: DEPRESSION
     Dates: start: 20061129, end: 20061204

REACTIONS (2)
  - AGRANULOCYTOSIS [None]
  - PANCYTOPENIA [None]
